FAERS Safety Report 7107506-5 (Version None)
Quarter: 2010Q4

REPORT INFORMATION
  Report Type: 
  Country: None (occurrence: None)
  Receive Date: 20101117
  Receipt Date: 20101108
  Transmission Date: 20110411
  Serious: Yes (Death, Other)
  Sender: FDA-Public Use
  Company Number: CA-TEVA-255052USA

PATIENT
  Age: 5 Year
  Sex: Female

DRUGS (3)
  1. CLARITHROMYCIN [Suspect]
     Indication: EAR INFECTION
  2. VALPROIC ACID [Suspect]
     Indication: CONVULSION
  3. HYDROCODONE [Suspect]
     Indication: NASOPHARYNGITIS
     Dosage: 1MG/ML; 1 TEASPOON THREE TIMES A DAY
     Route: 048

REACTIONS (2)
  - ACCIDENTAL OVERDOSE [None]
  - DRUG INTERACTION [None]
